FAERS Safety Report 24664091 (Version 1)
Quarter: 2024Q4

REPORT INFORMATION
  Report Type: Spontaneous
  Country: FR (occurrence: FR)
  Receive Date: 20241126
  Receipt Date: 20241126
  Transmission Date: 20250114
  Serious: Yes (Life-Threatening, Hospitalization, Other)
  Sender: AJANTA PHARMA USA INC
  Company Number: FR-AJANTA-2024AJA00182

PATIENT
  Age: 59 Year
  Sex: Male

DRUGS (1)
  1. DOXYCYCLINE HYCLATE [Suspect]
     Active Substance: DOXYCYCLINE HYCLATE
     Indication: Infection
     Dates: start: 2023

REACTIONS (1)
  - Eosinophilic myocarditis [Recovered/Resolved]

NARRATIVE: CASE EVENT DATE: 20230601
